FAERS Safety Report 25127154 (Version 1)
Quarter: 2025Q1

REPORT INFORMATION
  Report Type: Spontaneous
  Country: US (occurrence: US)
  Receive Date: 20250327
  Receipt Date: 20250327
  Transmission Date: 20250409
  Serious: No
  Sender: UCB
  Company Number: US-UCBSA-2025009243

PATIENT
  Sex: Male

DRUGS (2)
  1. BIMZELX [Suspect]
     Active Substance: BIMEKIZUMAB-BKZX
     Indication: Hidradenitis
     Dosage: 320 MILLIGRAM, EV 2 WEEKS(QOW) (THEN 1 PEN EVERY 4 WEEKS THEREAFTER)
     Route: 058
     Dates: start: 20250124
  2. BIMZELX [Suspect]
     Active Substance: BIMEKIZUMAB-BKZX
     Dosage: 640 MILLIGRAM, EV 2 WEEKS(QOW) (OVERDOSE)
     Route: 058
     Dates: start: 202502

REACTIONS (2)
  - Product dispensing error [Unknown]
  - Overdose [Unknown]

NARRATIVE: CASE EVENT DATE: 20250101
